FAERS Safety Report 8354068 (Version 4)
Quarter: 2013Q3

REPORT INFORMATION
  Report Type: Report from Study
  Country: US (occurrence: US)
  Receive Date: 20120125
  Receipt Date: 20130827
  Transmission Date: 20140515
  Serious: Yes (Hospitalization, Other)
  Sender: FDA-Public Use
  Company Number: US-ACTELION-A-US2011-45792

PATIENT
  Age: 70 Year
  Sex: Female

DRUGS (2)
  1. TRACLEER [Suspect]
     Indication: PULMONARY ARTERIAL HYPERTENSION
     Dosage: UNK
     Route: 048
     Dates: start: 20060602
  2. DIGOXIN [Concomitant]

REACTIONS (4)
  - Toe operation [Recovering/Resolving]
  - Toe amputation [Recovering/Resolving]
  - Diabetic ulcer [Recovered/Resolved]
  - Localised infection [Recovering/Resolving]
